FAERS Safety Report 17786102 (Version 4)
Quarter: 2021Q2

REPORT INFORMATION
  Report Type: Spontaneous
  Country: US (occurrence: US)
  Receive Date: 20200513
  Receipt Date: 20210625
  Transmission Date: 20210716
  Serious: Yes (Other)
  Sender: FDA-Public Use
  Company Number: US-TAKEDA-2020TUS022136

PATIENT
  Age: 82 Year
  Sex: Female

DRUGS (3)
  1. AMLODIPINE [Concomitant]
     Active Substance: AMLODIPINE BESYLATE
     Dosage: UNK
     Route: 065
  2. HYDROCHLOROTH [Concomitant]
     Active Substance: HYDROCHLOROTHIAZIDE
     Dosage: UNK
     Route: 065
  3. NINLARO [Suspect]
     Active Substance: IXAZOMIB CITRATE
     Indication: PLASMA CELL MYELOMA
     Dosage: 4 MILLIGRAM
     Route: 048
     Dates: start: 20200108

REACTIONS (5)
  - Pyrexia [Unknown]
  - Product dose omission issue [Unknown]
  - Nasopharyngitis [Unknown]
  - Off label use [Unknown]
  - Diarrhoea [Unknown]

NARRATIVE: CASE EVENT DATE: 20210227
